FAERS Safety Report 5533808-X (Version None)
Quarter: 2007Q4

REPORT INFORMATION
  Report Type: 
  Country: None (occurrence: None)
  Receive Date: 20071120
  Receipt Date: 20070809
  Transmission Date: 20080405
  Serious: Yes (Hospitalization, Disabling, Other)
  Sender: FDA-Public Use
  Company Number: WAES 0708USA01815

PATIENT
  Age: 50 Year
  Sex: Female
  Weight: 101.6057 kg

DRUGS (6)
  1. JANUVIA [Suspect]
     Indication: TYPE 2 DIABETES MELLITUS
     Dosage: 100 MG/DAILY/PO
     Route: 048
     Dates: start: 20070730, end: 20070801
  2. RISPERDAL [Concomitant]
  3. TEGRETOL [Concomitant]
  4. GLYBURIDE [Concomitant]
  5. LISINOPRIL [Concomitant]
  6. METFORMIN HCL [Concomitant]

REACTIONS (1)
  - ANAPHYLACTIC REACTION [None]
